APPROVED DRUG PRODUCT: BUTALBITAL, ACETAMINOPHEN AND CAFFEINE
Active Ingredient: ACETAMINOPHEN; BUTALBITAL; CAFFEINE
Strength: 300MG;50MG;40MG
Dosage Form/Route: CAPSULE;ORAL
Application: A207118 | Product #001 | TE Code: AA
Applicant: NUVO PHAMACEUTICALS INC
Approved: Oct 28, 2016 | RLD: No | RS: No | Type: RX